FAERS Safety Report 22706460 (Version 8)
Quarter: 2025Q4

REPORT INFORMATION
  Report Type: Report from Study
  Country: US (occurrence: US)
  Receive Date: 20230714
  Receipt Date: 20251218
  Transmission Date: 20260118
  Serious: Yes (Hospitalization, Other)
  Sender: PFIZER
  Company Number: US-PFIZER INC-PV202300122586

PATIENT
  Age: 84 Year
  Sex: Female
  Weight: 43.991 kg

DRUGS (4)
  1. IBRANCE [Suspect]
     Active Substance: PALBOCICLIB
     Indication: Breast cancer female
     Dosage: 100 MG, CYCLIC, (PALBOCICLIB AT 100 MG DAILY FOR 21 DAYS FOLLOWED BY A WEEK OFF)
     Dates: start: 20210602
  2. IBRANCE [Suspect]
     Active Substance: PALBOCICLIB
     Dosage: 75 MG, CYCLIC, (ONE 75 MG DAILY FOR 21 DAYS FOLLOWED BY 7 DAYS OFF)
     Route: 048
  3. IBRANCE [Suspect]
     Active Substance: PALBOCICLIB
     Dosage: 75MG (OF 75MG) TABLET ORAL DAILY FOR 28 DAYS
     Route: 048
     Dates: end: 20250827
  4. LETROZOLE [Concomitant]
     Active Substance: LETROZOLE
     Dosage: 2.5 MG, DAILY

REACTIONS (3)
  - Hip fracture [Unknown]
  - Deafness [Unknown]
  - Weight decreased [Unknown]
